FAERS Safety Report 9323410 (Version 2)
Quarter: 2013Q2

REPORT INFORMATION
  Report Type: Spontaneous
  Country: MX (occurrence: MX)
  Receive Date: 20130603
  Receipt Date: 20130606
  Transmission Date: 20140414
  Serious: Yes (Other)
  Sender: FDA-Public Use
  Company Number: MX-ROCHE-1231475

PATIENT
  Age: 59 Year
  Sex: Female

DRUGS (9)
  1. MABTHERA [Suspect]
     Indication: NON-HODGKIN^S LYMPHOMA
     Route: 042
     Dates: start: 20130419, end: 20130419
  2. LYSINE CLONIXINATE [Concomitant]
     Route: 048
  3. LEVOTHYROXINE [Concomitant]
     Route: 048
  4. VINCRISTINE [Concomitant]
  5. PREGABALIN [Concomitant]
     Route: 048
  6. ALLOPURINOL [Concomitant]
     Route: 048
  7. LEVOFLOXACIN [Concomitant]
     Route: 042
  8. PREDNISOLONA [Concomitant]
     Route: 048
  9. FOLIC ACID [Concomitant]

REACTIONS (3)
  - Convulsion [Unknown]
  - Headache [Unknown]
  - Dyspnoea [Unknown]
